FAERS Safety Report 5914614-0 (Version None)
Quarter: 2008Q4

REPORT INFORMATION
  Report Type: 
  Country: None (occurrence: None)
  Receive Date: 20081010
  Receipt Date: 20081001
  Transmission Date: 20090506
  Serious: Yes (Hospitalization)
  Sender: FDA-Public Use
  Company Number: JP-JNJFOC-20051106610

PATIENT
  Sex: Female
  Weight: 43 kg

DRUGS (16)
  1. REMICADE [Suspect]
     Route: 042
  2. REMICADE [Suspect]
     Route: 042
  3. REMICADE [Suspect]
     Route: 042
  4. REMICADE [Suspect]
     Indication: RHEUMATOID ARTHRITIS
     Route: 042
  5. METHOTREXATE SODIUM [Suspect]
     Route: 048
  6. METHOTREXATE SODIUM [Suspect]
     Indication: RHEUMATOID ARTHRITIS
     Route: 048
  7. ISONIAZID [Concomitant]
     Indication: ANTIBIOTIC PROPHYLAXIS
     Route: 048
  8. ADRENAL HORMONE PREPARATIONS [Concomitant]
     Indication: RHEUMATOID ARTHRITIS
  9. FLUCAM [Concomitant]
     Indication: RHEUMATOID ARTHRITIS
     Route: 048
  10. SOLON [Concomitant]
     Route: 048
  11. PREDONNE [Concomitant]
     Route: 048
  12. ENBREL [Concomitant]
     Indication: RHEUMATOID ARTHRITIS
     Route: 058
  13. LOXONIN [Concomitant]
     Indication: RHEUMATOID ARTHRITIS
     Route: 048
  14. TALION [Concomitant]
     Indication: RHEUMATOID ARTHRITIS
     Route: 048
  15. PREDONINE [Concomitant]
     Route: 048
  16. PREDONINE [Concomitant]
     Route: 048

REACTIONS (4)
  - BLOOD POTASSIUM INCREASED [None]
  - CARDIAC FAILURE [None]
  - MYELODYSPLASTIC SYNDROME [None]
  - PANCYTOPENIA [None]
